FAERS Safety Report 4696104-9 (Version None)
Quarter: 2005Q2

REPORT INFORMATION
  Report Type: 
  Country: None (occurrence: None)
  Receive Date: 20050620
  Receipt Date: 20050609
  Transmission Date: 20051028
  Serious: Yes (Hospitalization)
  Sender: FDA-Public Use
  Company Number: 200510407BFR

PATIENT
  Age: 35 Year
  Sex: Female

DRUGS (4)
  1. CIFLOX (CIPROFLOXACIN) [Suspect]
     Indication: ACUTE ENDOCARDITIS
     Dosage: 750 MG, BID, ORAL
     Route: 048
     Dates: start: 20050419, end: 20050509
  2. TAZOCILLINE [Suspect]
     Indication: ACUTE ENDOCARDITIS
     Dosage: TID, INTRAVENOUS
     Route: 042
     Dates: start: 20050419, end: 20050509
  3. PREVISCAN [Concomitant]
  4. OMEPRAZOLE [Concomitant]

REACTIONS (5)
  - AGRANULOCYTOSIS [None]
  - ANAEMIA [None]
  - CHILLS [None]
  - LUNG DISORDER [None]
  - PYREXIA [None]
